FAERS Safety Report 11759183 (Version 1)
Quarter: 2015Q4

REPORT INFORMATION
  Report Type: Spontaneous
  Country: US (occurrence: None)
  Receive Date: 20151119
  Receipt Date: 20151119
  Transmission Date: 20160304
  Serious: No
  Sender: FDA-Public Use
  Company Number: None

PATIENT
  Age: 62 Week
  Sex: Male
  Weight: 176.9 kg

DRUGS (1)
  1. STELARA [Suspect]
     Active Substance: USTEKINUMAB
     Indication: PSORIASIS
     Dosage: 90MIL?1THEN EVERY12WEEKS ?GIVEN INTO/UNDER THE SKIN

REACTIONS (2)
  - Psoriasis [None]
  - Unevaluable event [None]

NARRATIVE: CASE EVENT DATE: 20151104
